FAERS Safety Report 5313343-4 (Version None)
Quarter: 2007Q1

REPORT INFORMATION
  Report Type: 
  Country: None (occurrence: None)
  Receive Date: 20070201
  Receipt Date: 20061206
  Transmission Date: 20070707
  Serious: No
  Sender: FDA-Public Use
  Company Number: VNL_0328_2006

PATIENT
  Age: 51 Year
  Sex: Female
  Weight: 90.7194 kg

DRUGS (8)
  1. APOKYN [Suspect]
     Indication: PARKINSON'S DISEASE
     Dosage: DF ONCE SC
     Route: 058
     Dates: start: 20061127, end: 20061127
  2. APOKYN [Suspect]
     Indication: PARKINSON'S DISEASE
     Dosage: 0.2 ML VARIABLE SC
     Route: 058
     Dates: start: 20061204
  3. REQUIP [Concomitant]
  4. SINEMET [Concomitant]
  5. NEURONTIN [Concomitant]
  6. LIPITOR [Concomitant]
  7. SYNTHROID [Concomitant]
  8. MIGRAINE PILLS [Concomitant]

REACTIONS (1)
  - INJECTION SITE BRUISING [None]
